FAERS Safety Report 7935014-8 (Version None)
Quarter: 2011Q4

REPORT INFORMATION
  Report Type: 
  Country: None (occurrence: None)
  Receive Date: 20111122
  Receipt Date: 20111118
  Transmission Date: 20120403
  Serious: Yes (Hospitalization, Other)
  Sender: FDA-Public Use
  Company Number: AR-BRISTOL-MYERS SQUIBB COMPANY-15485402

PATIENT
  Age: 42 Year
  Sex: Male

DRUGS (3)
  1. BELATACEPT [Suspect]
     Indication: RENAL TRANSPLANT
     Dosage: ROUTE=EV
     Route: 042
     Dates: start: 20060605
  2. MYCOPHENOLATE MOFETIL (CELLCEPT) [Suspect]
     Indication: RENAL TRANSPLANT
     Dates: start: 20060605
  3. DELTASONE [Suspect]
     Indication: RENAL TRANSPLANT
     Dosage: STARTED ON 05JAN2011
     Dates: start: 20060605

REACTIONS (1)
  - PULMONARY TUBERCULOSIS [None]
